FAERS Safety Report 9371036 (Version 4)
Quarter: 2014Q1

REPORT INFORMATION
  Report Type: Report from Study
  Country: GB (occurrence: GB)
  Receive Date: 20130627
  Receipt Date: 20140117
  Transmission Date: 20141002
  Serious: Yes (Other)
  Sender: FDA-Public Use
  Company Number: GB-ROCHE-1242135

PATIENT
  Age: 79 Year
  Sex: 0

DRUGS (8)
  1. RANIBIZUMAB [Suspect]
     Indication: PRODUCT USED FOR UNKNOWN INDICATION
     Route: 050
     Dates: start: 20120420
  2. RANIBIZUMAB [Suspect]
     Route: 050
     Dates: start: 20121030
  3. RANIBIZUMAB [Suspect]
     Route: 050
     Dates: start: 20121119
  4. RANIBIZUMAB [Suspect]
     Route: 050
     Dates: end: 20110905
  5. RAMIPRIL [Concomitant]
  6. ATORVASTATIN [Concomitant]
  7. AMLODIPIN [Concomitant]
  8. DOXAZOSIN [Concomitant]

REACTIONS (2)
  - Transient ischaemic attack [Recovered/Resolved]
  - Inappropriate schedule of drug administration [Unknown]
